FAERS Safety Report 12340084 (Version 3)
Quarter: 2016Q2

REPORT INFORMATION
  Report Type: Report from Study
  Country: US (occurrence: US)
  Receive Date: 20160506
  Receipt Date: 20160620
  Transmission Date: 20160815
  Serious: No
  Sender: FDA-Public Use
  Company Number: US-AMGEN-USASP2016055423

PATIENT
  Age: 63 Year
  Sex: Female

DRUGS (4)
  1. ENBREL [Suspect]
     Active Substance: ETANERCEPT
     Indication: RHEUMATOID ARTHRITIS
     Dosage: 50 MG, QWK
     Route: 065
     Dates: start: 2015
  2. METHOTREXATE [Concomitant]
     Active Substance: METHOTREXATE
     Dosage: UNK
  3. ENBREL [Suspect]
     Active Substance: ETANERCEPT
     Dosage: UNK
     Route: 065
  4. INH [Concomitant]
     Active Substance: ISONIAZID
     Dosage: UNK

REACTIONS (13)
  - Wrong device dispensed [Unknown]
  - Unevaluable event [Unknown]
  - Feeling abnormal [Unknown]
  - Frustration tolerance decreased [Unknown]
  - Pain [Unknown]
  - Insomnia [Unknown]
  - Arthralgia [Unknown]
  - Mood altered [Unknown]
  - Headache [Unknown]
  - Malaise [Unknown]
  - Skin burning sensation [Unknown]
  - Device leakage [Unknown]
  - Injection site pain [Unknown]

NARRATIVE: CASE EVENT DATE: 201604
